FAERS Safety Report 6466144-8 (Version None)
Quarter: 2009Q4

REPORT INFORMATION
  Report Type: 
  Country: None (occurrence: None)
  Receive Date: 20091201
  Receipt Date: 20091201
  Transmission Date: 20100525
  Serious: Yes (Other)
  Sender: FDA-Public Use
  Company Number: None

PATIENT
  Sex: Female
  Weight: 68.9467 kg

DRUGS (1)
  1. SOLODYN [Suspect]
     Indication: ACNE
     Dosage: 65 MG 1X DAILY PO
     Route: 048
     Dates: start: 20090805, end: 20091020

REACTIONS (5)
  - ABDOMINAL DISTENSION [None]
  - BODY TEMPERATURE INCREASED [None]
  - HEPATIC FAILURE [None]
  - PAIN [None]
  - PAINFUL RESPIRATION [None]
